FAERS Safety Report 19953312 (Version 1)
Quarter: 2021Q4

REPORT INFORMATION
  Report Type: Spontaneous
  Country: IT (occurrence: IT)
  Receive Date: 20211013
  Receipt Date: 20211013
  Transmission Date: 20220303
  Serious: Yes (Other)
  Sender: FDA-Public Use
  Company Number: IT-ABBVIE-21K-083-4117876-00

PATIENT
  Age: 17 Year
  Sex: Female

DRUGS (2)
  1. VALPROATE SODIUM [Suspect]
     Active Substance: VALPROATE SODIUM
     Indication: Insomnia
     Route: 065
     Dates: start: 20190101, end: 20190219
  2. XANAX [Concomitant]
     Active Substance: ALPRAZOLAM
     Indication: Product used for unknown indication
     Route: 065

REACTIONS (4)
  - Dermatitis bullous [Unknown]
  - Pain [Unknown]
  - Odynophagia [Unknown]
  - Stomatitis [Unknown]

NARRATIVE: CASE EVENT DATE: 20190211
